FAERS Safety Report 20942732 (Version 4)
Quarter: 2022Q3

REPORT INFORMATION
  Report Type: Spontaneous
  Country: US (occurrence: US)
  Receive Date: 20220610
  Receipt Date: 20220728
  Transmission Date: 20221027
  Serious: No
  Sender: FDA-Public Use
  Company Number: US-UNITED THERAPEUTICS-UNT-2022-012647

PATIENT
  Age: 2 Year
  Sex: Male
  Weight: 15.873 kg

DRUGS (7)
  1. REMODULIN [Suspect]
     Active Substance: TREPROSTINIL
     Indication: Pulmonary arterial hypertension
     Dosage: UNK, CONTINUING
     Route: 058
     Dates: start: 20210920
  2. REMODULIN [Suspect]
     Active Substance: TREPROSTINIL
     Dosage: 0.050 ?G/KG, CONTINUING
     Route: 058
  3. REMODULIN [Suspect]
     Active Substance: TREPROSTINIL
     Dosage: 0.055 ?G/KG, CONTINUING
     Route: 058
  4. TRACLEER [Concomitant]
     Active Substance: BOSENTAN
     Indication: Pulmonary arterial hypertension
     Dosage: 32 MG (1 TIME EVERY 0.5 DAYS)
     Route: 048
     Dates: start: 20211005
  5. SILDENAFIL [Concomitant]
     Active Substance: SILDENAFIL
     Indication: Product used for unknown indication
     Dosage: UNK
     Route: 065
  6. HYDROCORTISONE [Concomitant]
     Active Substance: HYDROCORTISONE
     Indication: Product used for unknown indication
     Route: 061
  7. CETIRIZINE HYDROCHLORIDE [Concomitant]
     Active Substance: CETIRIZINE HYDROCHLORIDE
     Indication: Product used for unknown indication
     Route: 065

REACTIONS (1)
  - Dermatitis contact [Not Recovered/Not Resolved]

NARRATIVE: CASE EVENT DATE: 20220609
